FAERS Safety Report 9266085 (Version 1)
Quarter: 2013Q2

REPORT INFORMATION
  Report Type: Spontaneous
  Country: ES (occurrence: ES)
  Receive Date: 20130501
  Receipt Date: 20130501
  Transmission Date: 20140414
  Serious: Yes (Hospitalization)
  Sender: FDA-Public Use
  Company Number: ES-009507513-1304ESP013166

PATIENT
  Age: 52 Year
  Sex: Female
  Weight: 93 kg

DRUGS (6)
  1. REBETOL [Suspect]
     Indication: CHRONIC HEPATITIS C
     Route: 048
     Dates: start: 20121005, end: 20130327
  2. PEGASYS [Interacting]
     Indication: CHRONIC HEPATITIS C
     Route: 058
     Dates: start: 20121005, end: 20130322
  3. CIPROFLOXACIN [Interacting]
     Indication: URINARY TRACT INFECTION
     Route: 048
     Dates: start: 20130320, end: 20130323
  4. EUCREAS [Concomitant]
     Indication: TYPE 2 DIABETES MELLITUS
     Route: 048
     Dates: end: 20130327
  5. TELAPREVIR [Concomitant]
     Indication: CHRONIC HEPATITIS C
     Route: 048
     Dates: start: 20121102, end: 20130125
  6. BINOCRIT [Concomitant]
     Indication: ANAEMIA
     Dosage: CONCENTRATION: 30.000UI/0.75 ML
     Route: 065
     Dates: start: 20121109, end: 20121228

REACTIONS (1)
  - Renal failure acute [Recovered/Resolved]
